FAERS Safety Report 6877826-8 (Version None)
Quarter: 2010Q3

REPORT INFORMATION
  Report Type: 
  Country: None (occurrence: None)
  Receive Date: 20100727
  Receipt Date: 20070530
  Transmission Date: 20110219
  Serious: No
  Sender: FDA-Public Use
  Company Number: US-PFIZER INC-2007044443

PATIENT
  Sex: Male

DRUGS (2)
  1. CELEBREX [Suspect]
     Route: 048
     Dates: start: 20070530
  2. METHYLPHENIDATE [Concomitant]

REACTIONS (2)
  - FLUSHING [None]
  - HYPERHIDROSIS [None]
